FAERS Safety Report 9876447 (Version 2)
Quarter: 2014Q1

REPORT INFORMATION
  Report Type: Other
  Country: US (occurrence: US)
  Receive Date: 20140206
  Receipt Date: 20140206
  Transmission Date: 20141002
  Serious: Yes (Hospitalization)
  Sender: FDA-Public Use
  Company Number: US-ACORDA-ACO_36967_2013

PATIENT
  Age: 47 Year
  Sex: Female
  Weight: 98.41 kg

DRUGS (19)
  1. AMPYRA [Suspect]
     Indication: GAIT DISTURBANCE
     Dosage: 10 MG, Q 12 HRS
     Route: 048
     Dates: start: 201306
  2. BACLOFEN [Concomitant]
     Indication: MULTIPLE SCLEROSIS
     Dosage: 10 MG TAB, UNK
     Route: 065
     Dates: start: 2004
  3. VIIBRYD [Concomitant]
     Indication: DEPRESSION
     Dosage: 40 MG TAB, UNK
     Route: 065
  4. FUROSEMIDE [Concomitant]
     Indication: JOINT SWELLING
     Dosage: 40 MG TAB, UNK
     Route: 065
     Dates: start: 201305, end: 2013
  5. POTASSIUM [Concomitant]
     Indication: PRODUCT USED FOR UNKNOWN INDICATION
     Dosage: 95 MG TAB, UNK
     Route: 065
     Dates: start: 201301
  6. VITAMIN C [Concomitant]
     Indication: GENERAL PHYSICAL CONDITION
     Dosage: 500 MG CAP, UNK
     Route: 065
  7. IRON [Concomitant]
     Indication: ANAEMIA
     Dosage: 65 MG TAB, UNK
     Route: 065
  8. BYSTOLIC [Concomitant]
     Indication: BLOOD PRESSURE
     Dosage: 5 MG TAB, UNK
     Route: 065
     Dates: start: 2013
  9. TOPAMAX [Concomitant]
     Indication: HEADACHE
     Dosage: 25 MG CAP, UNK
     Route: 065
     Dates: start: 201304
  10. RITALIN [Concomitant]
     Indication: PRODUCT USED FOR UNKNOWN INDICATION
     Dosage: 30 MG TAB, UNK
     Route: 065
     Dates: start: 2010
  11. RITALIN [Concomitant]
     Dosage: 20 MG, UNK
     Route: 065
     Dates: start: 2010
  12. VITAMIN D [Concomitant]
     Indication: GENERAL PHYSICAL CONDITION
     Dosage: 2000 IU CAP, UNK
     Route: 065
  13. VITAMIN D [Concomitant]
     Dosage: 50000 IU CAP, UNK
     Route: 065
  14. BLACK COHOSH [Concomitant]
     Indication: GENERAL PHYSICAL CONDITION
     Dosage: 40 MG CAP, UNK
     Route: 065
  15. ASPIRIN [Concomitant]
     Indication: THROMBOSIS PROPHYLAXIS
     Dosage: 81 MG TAB, UNK
     Route: 065
     Dates: end: 20130805
  16. VITAMIN B12 [Concomitant]
     Indication: GENERAL PHYSICAL CONDITION
     Dosage: 1500 MG TAB, UNK
     Route: 065
  17. ADDERALL [Concomitant]
     Indication: FATIGUE
     Dosage: 30 MG TAB, UNK
     Route: 065
  18. REBIF [Concomitant]
     Indication: MULTIPLE SCLEROSIS
     Dosage: UNK
  19. METHYLPHENIDATE [Concomitant]
     Indication: PRODUCT USED FOR UNKNOWN INDICATION

REACTIONS (2)
  - Multiple sclerosis relapse [Recovering/Resolving]
  - Paraesthesia [Not Recovered/Not Resolved]
